FAERS Safety Report 8343480-1 (Version None)
Quarter: 2012Q2

REPORT INFORMATION
  Report Type: 
  Country: None (occurrence: None)
  Receive Date: 20120508
  Receipt Date: 20120504
  Transmission Date: 20120825
  Serious: Yes (Other)
  Sender: FDA-Public Use
  Company Number: PHHY2012BR029956

PATIENT
  Sex: Female

DRUGS (6)
  1. ALDACTONE [Concomitant]
     Dosage: 1 DF, DAILY
     Route: 048
     Dates: start: 20090101
  2. SIMVASTATIN [Concomitant]
     Indication: BLOOD CHOLESTEROL INCREASED
     Dosage: 20 MG, QD
     Route: 048
     Dates: start: 20090101
  3. LOSARTAN POTASSIUM [Concomitant]
     Dosage: 1 DF, QD
     Route: 048
     Dates: start: 20090101
  4. ASPIRIN [Concomitant]
     Indication: CARDIAC DISORDER
     Dosage: 2 DF, QD
     Route: 048
     Dates: start: 20090101
  5. ATENOLOL [Concomitant]
     Dosage: 1 DF, QD
     Route: 048
     Dates: start: 20090101
  6. FORMOTEROL FUMARATE [Suspect]
     Indication: DYSPNOEA
     Dosage: MORE THAN TWICE A DAY
     Dates: start: 20040101

REACTIONS (2)
  - MYOCARDIAL INFARCTION [None]
  - INFARCTION [None]
